FAERS Safety Report 5342733-9 (Version None)
Quarter: 2007Q2

REPORT INFORMATION
  Report Type: 
  Country: None (occurrence: None)
  Receive Date: 20070601
  Receipt Date: 20070523
  Transmission Date: 20071010
  Serious: Yes (Death)
  Sender: FDA-Public Use
  Company Number: BR-ABBOTT-07P-020-0369861-00

PATIENT

DRUGS (5)
  1. HUMIRA [Suspect]
     Indication: DRUG USE FOR UNKNOWN INDICATION
  2. FLUOXETINE [Concomitant]
     Indication: DRUG USE FOR UNKNOWN INDICATION
  3. RANITIDINE [Concomitant]
     Indication: DRUG USE FOR UNKNOWN INDICATION
  4. UNKNOWN ANTIINFLAMMATORY [Concomitant]
     Indication: DRUG USE FOR UNKNOWN INDICATION
  5. GLIBENCLAMIDE [Concomitant]
     Indication: DIABETES MELLITUS

REACTIONS (2)
  - ANKLE FRACTURE [None]
  - FALL [None]
